FAERS Safety Report 10240984 (Version 1)
Quarter: 2014Q2

REPORT INFORMATION
  Report Type: Spontaneous
  Country: US (occurrence: US)
  Receive Date: 20140617
  Receipt Date: 20140617
  Transmission Date: 20141212
  Serious: No
  Sender: FDA-Public Use
  Company Number: US-BAYER-2014-090666

PATIENT
  Age: 19 Year
  Sex: Male
  Weight: 95.24 kg

DRUGS (2)
  1. ALEVE CAPLET [Suspect]
     Indication: BACK PAIN
     Dosage: 2 DF, QD
     Dates: start: 201204
  2. ALEVE CAPLET [Suspect]
     Indication: ARTHRALGIA

REACTIONS (1)
  - Incorrect drug administration duration [None]
